FAERS Safety Report 4851837-6 (Version None)
Quarter: 2005Q4

REPORT INFORMATION
  Report Type: 
  Country: None (occurrence: None)
  Receive Date: 20051213
  Receipt Date: 20051202
  Transmission Date: 20060501
  Serious: Yes (Other)
  Sender: FDA-Public Use
  Company Number: DE-AMGEN-UK160122

PATIENT
  Sex: Male
  Weight: 98 kg

DRUGS (5)
  1. NEULASTA [Suspect]
     Indication: CHEMOTHERAPY
     Route: 058
     Dates: start: 20050827
  2. PREDNISONE [Concomitant]
     Route: 048
     Dates: start: 20050826, end: 20050830
  3. IDEOS [Concomitant]
     Route: 048
     Dates: start: 20050826
  4. PANTOZOL [Concomitant]
     Route: 048
     Dates: start: 20050826, end: 20050830
  5. AMLODIPINE [Concomitant]
     Route: 048
     Dates: start: 20030101

REACTIONS (2)
  - ANXIETY [None]
  - RESTLESSNESS [None]
